FAERS Safety Report 14232455 (Version 1)
Quarter: 2017Q4

REPORT INFORMATION
  Report Type: Spontaneous
  Country: CA (occurrence: CA)
  Receive Date: 20171128
  Receipt Date: 20171128
  Transmission Date: 20180321
  Serious: Yes (Life-Threatening)
  Sender: FDA-Public Use
  Company Number: CA-NAPPMUNDI-CAN-2017-0008055

PATIENT
  Age: 85 Year
  Sex: Female
  Weight: 84 kg

DRUGS (18)
  1. GLUCOSAMINE [Concomitant]
     Active Substance: GLUCOSAMINE
     Dosage: UNK
  2. BUTRANS [Suspect]
     Active Substance: BUPRENORPHINE
     Indication: PAIN
     Dosage: 5MCG/HR, WEEKLY
     Route: 062
  3. BUTRANS [Suspect]
     Active Substance: BUPRENORPHINE
     Indication: ARTHRITIS
  4. ACETAMINOPHEN. [Concomitant]
     Active Substance: ACETAMINOPHEN
     Dosage: UNK
  5. CITALOPRAM [Concomitant]
     Active Substance: CITALOPRAM HYDROBROMIDE
     Dosage: UNK
  6. FUROSEMIDE. [Concomitant]
     Active Substance: FUROSEMIDE
     Dosage: UNK
  7. AMLODIPINE [Concomitant]
     Active Substance: AMLODIPINE BESYLATE
     Dosage: UNK
  8. ATORVASTATIN CALCIUM. [Concomitant]
     Active Substance: ATORVASTATIN CALCIUM
     Dosage: UNK
  9. VOLTAREN [Concomitant]
     Active Substance: DICLOFENAC SODIUM
     Dosage: UNK
  10. ASA [Concomitant]
     Active Substance: ASPIRIN
     Dosage: UNK
  11. COD LIVER OIL [Concomitant]
     Active Substance: COD LIVER OIL
     Dosage: UNK
  12. LORAZEPAM. [Concomitant]
     Active Substance: LORAZEPAM
     Dosage: UNK
  13. MOMETASONE FUROATE. [Concomitant]
     Active Substance: MOMETASONE FUROATE
     Dosage: UNK
  14. NITROGLYCERIN. [Concomitant]
     Active Substance: NITROGLYCERIN
     Dosage: UNK
  15. PROBIOTICS [Concomitant]
     Active Substance: PROBIOTICS NOS
     Indication: PRODUCT USED FOR UNKNOWN INDICATION
     Dosage: UNK
     Route: 065
  16. VITAMIN D                          /00107901/ [Concomitant]
     Active Substance: ERGOCALCIFEROL
     Dosage: UNK
  17. FORMOTEROL [Concomitant]
     Active Substance: FORMOTEROL
     Dosage: UNK
  18. VITALUX                            /01586901/ [Concomitant]
     Dosage: UNK

REACTIONS (7)
  - Depression [Recovered/Resolved]
  - Suicidal ideation [Recovered/Resolved]
  - Euphoric mood [Recovered/Resolved]
  - Tremor [Recovered/Resolved]
  - Anger [Recovered/Resolved]
  - Crying [Recovered/Resolved]
  - Hot flush [Recovered/Resolved]
